FAERS Safety Report 17450170 (Version 1)
Quarter: 2020Q1

REPORT INFORMATION
  Report Type: Spontaneous
  Country: US (occurrence: US)
  Receive Date: 20200209
  Receipt Date: 20200209
  Transmission Date: 20200409
  Serious: No
  Sender: FDA-Public Use
  Company Number: None

PATIENT
  Age: 19 Year
  Sex: Female

DRUGS (1)
  1. MYCOPHENOLATE [Suspect]
     Active Substance: MYCOPHENOLIC ACID
     Indication: GLOMERULAR VASCULAR DISORDER
     Route: 048
     Dates: start: 20191218

REACTIONS (2)
  - Depression [None]
  - Diarrhoea [None]

NARRATIVE: CASE EVENT DATE: 20191218
